FAERS Safety Report 4526028-9 (Version None)
Quarter: 2004Q4

REPORT INFORMATION
  Report Type: 
  Country: None (occurrence: None)
  Receive Date: 20041129
  Receipt Date: 20040902
  Transmission Date: 20050328
  Serious: Yes (Hospitalization)
  Sender: FDA-Public Use
  Company Number: USA040977275

PATIENT
  Sex: Female

DRUGS (3)
  1. ZYPREXA [Suspect]
     Indication: ACUTE PSYCHOSIS
  2. PROZAC [Suspect]
  3. PROZAC [Concomitant]

REACTIONS (6)
  - AKATHISIA [None]
  - INSOMNIA [None]
  - INTENTIONAL OVERDOSE [None]
  - PYREXIA [None]
  - SWELLING [None]
  - THIRST [None]
